FAERS Safety Report 7714829-5 (Version None)
Quarter: 2011Q3

REPORT INFORMATION
  Report Type: 
  Country: None (occurrence: None)
  Receive Date: 20110829
  Receipt Date: 20110822
  Transmission Date: 20111222
  Serious: Yes (Death, Hospitalization, Other)
  Sender: FDA-Public Use
  Company Number: GB-ASTELLAS-2011US003926

PATIENT
  Age: 68 Year
  Sex: Male

DRUGS (1)
  1. ERLOTINIB HYDROCHLORIDE [Suspect]
     Indication: LUNG ADENOCARCINOMA RECURRENT
     Dosage: 150 MG, UID/QD
     Route: 048
     Dates: start: 20110614, end: 20110617

REACTIONS (2)
  - DEATH [None]
  - DYSPNOEA [None]
